FAERS Safety Report 4409716-4 (Version None)
Quarter: 2004Q3

REPORT INFORMATION
  Report Type: 
  Country: None (occurrence: None)
  Receive Date: 20040727
  Receipt Date: 20040727
  Transmission Date: 20050211
  Serious: Yes (Life-Threatening)
  Sender: FDA-Public Use
  Company Number: None

PATIENT
  Age: 33 Year
  Sex: Female
  Weight: 58.514 kg

DRUGS (5)
  1. TUBERCULIN SKIN TEST 5TU/0.1 ML PARKEDALE [Suspect]
     Dosage: 5 TU=0.  0.1 ML 1 ML INTRADERMAL
     Route: 023
     Dates: start: 20040724, end: 20040724
  2. CETIRIZINE HCL [Concomitant]
  3. FLUOXETINE [Concomitant]
  4. LAMOTRIGINE [Concomitant]
  5. PREDNISONE TAB [Concomitant]

REACTIONS (5)
  - DIZZINESS [None]
  - DYSPNOEA [None]
  - RASH [None]
  - SKIN DISORDER [None]
  - WHEEZING [None]
